FAERS Safety Report 7086663-3 (Version None)
Quarter: 2010Q4

REPORT INFORMATION
  Report Type: 
  Country: None (occurrence: None)
  Receive Date: 20101105
  Receipt Date: 20101027
  Transmission Date: 20110411
  Serious: Yes (Hospitalization)
  Sender: FDA-Public Use
  Company Number: JP-ELI_LILLY_AND_COMPANY-JP201010000304

PATIENT
  Sex: Male
  Weight: 53 kg

DRUGS (7)
  1. GEMZAR [Suspect]
     Indication: PANCREATIC CARCINOMA STAGE III
     Dosage: 1400 MG, OTHER
     Route: 042
     Dates: start: 20100329, end: 20100720
  2. GASTER D [Concomitant]
     Indication: POSTOPERATIVE CARE
     Dosage: 20 MG, 2/D
     Route: 048
     Dates: start: 20100318
  3. PANCREAZE [Concomitant]
     Dosage: 27 MG, DAILY (1/D)
     Route: 048
  4. MAGMITT [Concomitant]
     Dosage: 9 D/F, DAILY (1/D)
     Route: 048
  5. LAC-B [Concomitant]
     Indication: POSTOPERATIVE CARE
     Dosage: 1 G, 3/D
     Route: 048
     Dates: start: 20100318
  6. BERIZYM [Concomitant]
     Indication: POSTOPERATIVE CARE
     Dosage: 1 G, 3/D
     Dates: start: 20100318
  7. MAGLAX [Concomitant]
     Indication: POSTOPERATIVE CARE
     Dosage: 330 MG, 3/D
     Route: 048
     Dates: start: 20100318

REACTIONS (1)
  - HEPATITIS B [None]
